FAERS Safety Report 6005801-4 (Version None)
Quarter: 2008Q4

REPORT INFORMATION
  Report Type: 
  Country: None (occurrence: None)
  Receive Date: 20081217
  Receipt Date: 20081210
  Transmission Date: 20090506
  Serious: Yes (Hospitalization)
  Sender: FDA-Public Use
  Company Number: FR-BAYER-200832538GPV

PATIENT
  Age: 7 Year
  Sex: Female
  Weight: 19 kg

DRUGS (5)
  1. CIPROFLOXACIN HYDROCHLORIDE [Suspect]
     Indication: DRUG USE FOR UNKNOWN INDICATION
     Route: 048
     Dates: start: 20080918, end: 20080918
  2. TAZOCILLINE [Concomitant]
     Indication: PYREXIA
     Route: 065
     Dates: start: 20080907, end: 20080908
  3. AMIKLIN [Concomitant]
     Indication: PYREXIA
     Route: 065
     Dates: start: 20080907
  4. CLAFORAN [Concomitant]
     Indication: DRUG USE FOR UNKNOWN INDICATION
     Route: 042
     Dates: start: 20080908, end: 20080917
  5. ROCEPHIN [Concomitant]
     Indication: DRUG USE FOR UNKNOWN INDICATION
     Route: 042
     Dates: end: 20080924

REACTIONS (1)
  - URTICARIA [None]
